FAERS Safety Report 8133129-5 (Version None)
Quarter: 2012Q1

REPORT INFORMATION
  Report Type: 
  Country: None (occurrence: None)
  Receive Date: 20120213
  Receipt Date: 20120203
  Transmission Date: 20120608
  Serious: No
  Sender: FDA-Public Use
  Company Number: PHHY2011US41323

PATIENT
  Sex: Male
  Weight: 103.86 kg

DRUGS (4)
  1. KETOROLAC TROMETHAMINE [Concomitant]
  2. HYDROCHLOROTHIAZIDE [Concomitant]
     Indication: HYPERTENSION
     Dosage: 25 MG DAILY
     Dates: start: 20100701
  3. TASIGNA [Suspect]
     Indication: CHRONIC MYELOID LEUKAEMIA
     Dosage: 300 MG, BID
     Route: 048
     Dates: start: 20110419
  4. VICODIN [Concomitant]
     Indication: HEADACHE
     Dosage: 5 MG, UNK

REACTIONS (12)
  - HEADACHE [None]
  - FATIGUE [None]
  - DIARRHOEA [None]
  - ERECTILE DYSFUNCTION [None]
  - UPPER RESPIRATORY TRACT INFECTION [None]
  - BLOOD TESTOSTERONE DECREASED [None]
  - PALPITATIONS [None]
  - GYNAECOMASTIA [None]
  - BLOOD GLUCOSE INCREASED [None]
  - LIVER FUNCTION TEST ABNORMAL [None]
  - CHROMATURIA [None]
  - EMOTIONAL DISORDER [None]
